FAERS Safety Report 8803697 (Version 1)
Quarter: 2012Q4

REPORT INFORMATION
  Report Type: 
  Country: ZA (occurrence: ZA)
  Receive Date: 20120924
  Receipt Date: 20120924
  Transmission Date: 20130627
  Serious: Yes (Death)
  Sender: FDA-Public Use
  Company Number: ZA-B.I. PHARMACEUTICALS,INC./RIDGEFIELD-2012-AP-00751ZA

PATIENT
  Age: 48 Year
  Sex: Female

DRUGS (5)
  1. APTIVUS [Suspect]
     Indication: HIV INFECTION
     Dosage: 1000 mg
     Route: 048
     Dates: start: 201111, end: 20120729
  2. PURBAC [Concomitant]
  3. NOVIR [Concomitant]
  4. TYRICTEN [Concomitant]
  5. ANTIEMETICS [Concomitant]

REACTIONS (1)
  - Immunodeficiency [Fatal]
